FAERS Safety Report 6524956-6 (Version None)
Quarter: 2010Q1

REPORT INFORMATION
  Report Type: 
  Country: None (occurrence: None)
  Receive Date: 20100104
  Receipt Date: 20091224
  Transmission Date: 20100710
  Serious: Yes (Other)
  Sender: FDA-Public Use
  Company Number: AU-JNJFOC-20091204700

PATIENT
  Sex: Female

DRUGS (2)
  1. REMICADE [Suspect]
     Route: 042
  2. REMICADE [Suspect]
     Indication: CUTANEOUS SARCOIDOSIS
     Route: 042

REACTIONS (3)
  - HAIR GROWTH ABNORMAL [None]
  - PLATELET COUNT INCREASED [None]
  - THERAPEUTIC RESPONSE UNEXPECTED [None]
